FAERS Safety Report 6703373-X (Version None)
Quarter: 2010Q2

REPORT INFORMATION
  Report Type: 
  Country: None (occurrence: None)
  Receive Date: 20100430
  Receipt Date: 20100423
  Transmission Date: 20101027
  Serious: Yes (Hospitalization, Other)
  Sender: FDA-Public Use
  Company Number: US-TEVA-230977USA

PATIENT
  Sex: Female

DRUGS (3)
  1. CLARAVIS [Suspect]
     Indication: ACNE
     Route: 048
  2. TRAMADOL HCL [Suspect]
  3. MEDROXYPROGESTERONE ACETATE [Concomitant]

REACTIONS (2)
  - INTENTIONAL OVERDOSE [None]
  - SUICIDE ATTEMPT [None]
